FAERS Safety Report 9061487 (Version 2)
Quarter: 2013Q1

REPORT INFORMATION
  Report Type: Spontaneous
  Country: IL (occurrence: IL)
  Receive Date: 20130204
  Receipt Date: 20130220
  Transmission Date: 20140127
  Serious: Yes (Hospitalization)
  Sender: FDA-Public Use
  Company Number: IL-ELI_LILLY_AND_COMPANY-IL201301008985

PATIENT
  Age: 87 None
  Sex: Female

DRUGS (6)
  1. FORTEO [Suspect]
     Indication: OSTEOPOROSIS
     Dosage: 20 UNK, UNK
     Route: 058
     Dates: start: 20120628
  2. OMEPRADEX [Concomitant]
  3. RAMIPRIL [Concomitant]
  4. ELTROXIN [Concomitant]
  5. TARGIN [Concomitant]
  6. OPTALGIN [Concomitant]

REACTIONS (1)
  - Cholelithiasis [Recovered/Resolved]
